FAERS Safety Report 19031523 (Version 1)
Quarter: 2021Q1

REPORT INFORMATION
  Report Type: Spontaneous
  Country: US (occurrence: US)
  Receive Date: 20210319
  Receipt Date: 20210319
  Transmission Date: 20210420
  Serious: Yes (Other)
  Sender: FDA-Public Use
  Company Number: None

PATIENT
  Age: 13 Year
  Sex: Female
  Weight: 71.8 kg

DRUGS (1)
  1. BAMLANIVIMAB /ETESEVIMAB [Suspect]
     Active Substance: BAMLANIVIMAB\ETESEVIMAB
     Indication: SARS-COV-2 TEST POSITIVE
     Dosage: ?          OTHER FREQUENCY:ONCE;?
     Route: 041
     Dates: start: 20210318, end: 20210318

REACTIONS (5)
  - Nausea [None]
  - Oxygen saturation decreased [None]
  - Dyspnoea [None]
  - Infusion related reaction [None]
  - Infusion site pain [None]

NARRATIVE: CASE EVENT DATE: 20210318
